FAERS Safety Report 15878786 (Version 1)
Quarter: 2019Q1

REPORT INFORMATION
  Report Type: Spontaneous
  Country: AU (occurrence: AU)
  Receive Date: 20190128
  Receipt Date: 20190128
  Transmission Date: 20190417
  Serious: Yes (Other)
  Sender: FDA-Public Use
  Company Number: AU-TEVA-2019-AU-1004719

PATIENT
  Age: 32 Year
  Sex: Female

DRUGS (2)
  1. VELIPARIB [Suspect]
     Active Substance: VELIPARIB
     Route: 065
  2. PACLITAXEL. [Suspect]
     Active Substance: PACLITAXEL
     Dosage: DOSAGE UNKNOWN
     Route: 065

REACTIONS (5)
  - Metastases to bone [Unknown]
  - Pulmonary mass [Unknown]
  - Malignant neoplasm progression [Unknown]
  - Metastases to liver [Unknown]
  - Metastases to central nervous system [Unknown]
